FAERS Safety Report 5765082-3 (Version None)
Quarter: 2008Q2

REPORT INFORMATION
  Report Type: 
  Country: None (occurrence: None)
  Receive Date: 20080605
  Receipt Date: 20080527
  Transmission Date: 20081010
  Serious: Yes (Other)
  Sender: FDA-Public Use
  Company Number: 163-21880-08050791

PATIENT
  Age: 35 Year
  Sex: Female
  Weight: 67.8 kg

DRUGS (10)
  1. REVLIMID [Suspect]
     Indication: GRAFT VERSUS HOST DISEASE
     Dosage: 10 MG, 2 IN 1 D, ORAL
     Route: 048
     Dates: start: 20080508, end: 20080515
  2. ACTIGALL [Concomitant]
  3. BACTRIM DS [Concomitant]
  4. CYMBALTA [Concomitant]
  5. DIFLUCAN [Concomitant]
  6. ETODOLAC [Concomitant]
  7. NEXIUM [Concomitant]
  8. TACROLIMUS [Concomitant]
  9. VALTREX [Concomitant]
  10. PROPRANOLOL [Concomitant]

REACTIONS (3)
  - BLOOD HUMAN CHORIONIC GONADOTROPIN POSITIVE [None]
  - NEOPLASM [None]
  - PREGNANCY TEST URINE POSITIVE [None]
